FAERS Safety Report 5349650-9 (Version None)
Quarter: 2007Q2

REPORT INFORMATION
  Report Type: 
  Country: None (occurrence: None)
  Receive Date: 20070607
  Receipt Date: 20070531
  Transmission Date: 20071010
  Serious: Yes (Death, Life-Threatening)
  Sender: FDA-Public Use
  Company Number: FR-BRISTOL-MYERS SQUIBB COMPANY-13806419

PATIENT
  Age: 61 Year
  Sex: Female

DRUGS (6)
  1. ENDOXAN [Suspect]
     Indication: BURKITT'S LYMPHOMA
     Route: 042
     Dates: start: 20070516, end: 20070518
  2. DOXORUBICIN HCL [Suspect]
     Indication: BURKITT'S LYMPHOMA
     Route: 042
     Dates: start: 20070516, end: 20070516
  3. MABTHERA [Suspect]
     Indication: BURKITT'S LYMPHOMA
     Route: 042
     Dates: start: 20070515, end: 20070515
  4. ONCOVIN [Suspect]
     Indication: BURKITT'S LYMPHOMA
     Route: 042
     Dates: start: 20070515, end: 20070515
  5. PERINDOPRIL ERBUMINE [Concomitant]
  6. FOZITEC [Concomitant]

REACTIONS (4)
  - ACUTE CORONARY SYNDROME [None]
  - CARDIAC FAILURE ACUTE [None]
  - CONDITION AGGRAVATED [None]
  - PANCYTOPENIA [None]
